FAERS Safety Report 4349702-6 (Version None)
Quarter: 2004Q1

REPORT INFORMATION
  Report Type: 
  Country: None (occurrence: None)
  Receive Date: 20040329
  Receipt Date: 20040123
  Transmission Date: 20041129
  Serious: No
  Sender: FDA-Public Use
  Company Number: USA040157467

PATIENT
  Age: 43 Year
  Sex: Male

DRUGS (2)
  1. STRATTERA [Suspect]
     Dosage: 54 MG/DAY
     Dates: start: 20030401
  2. WELLBUTRIN [Concomitant]

REACTIONS (1)
  - ALOPECIA [None]
